FAERS Safety Report 20095151 (Version 4)
Quarter: 2022Q2

REPORT INFORMATION
  Report Type: Report from Study
  Country: US (occurrence: US)
  Receive Date: 20211122
  Receipt Date: 20220613
  Transmission Date: 20220720
  Serious: Yes (Hospitalization, Other)
  Sender: FDA-Public Use
  Company Number: US-BIOVITRUM-2021US10963

PATIENT
  Age: 2 Year
  Sex: Male

DRUGS (2)
  1. KINERET [Suspect]
     Active Substance: ANAKINRA
     Indication: Still^s disease
     Route: 058
     Dates: start: 20210420
  2. KINERET [Suspect]
     Active Substance: ANAKINRA
     Route: 058
     Dates: start: 202205

REACTIONS (10)
  - Juvenile idiopathic arthritis [Unknown]
  - Pyrexia [Unknown]
  - Viral infection [Unknown]
  - Ear infection [Unknown]
  - COVID-19 [Recovered/Resolved]
  - Inflammation [Unknown]
  - Joint stiffness [Unknown]
  - Product dose omission issue [Unknown]
  - Product dose omission in error [Unknown]
  - Off label use [Unknown]

NARRATIVE: CASE EVENT DATE: 20210420
